FAERS Safety Report 10721437 (Version 1)
Quarter: 2015Q1

REPORT INFORMATION
  Report Type: Report from Study
  Country: US (occurrence: US)
  Receive Date: 20150119
  Receipt Date: 20150119
  Transmission Date: 20150721
  Serious: Yes (Hospitalization)
  Sender: FDA-Public Use
  Company Number: US-SA-2014SA139779

PATIENT
  Age: 56 Year
  Sex: Female

DRUGS (2)
  1. AUBAGIO [Suspect]
     Active Substance: TERIFLUNOMIDE
     Indication: MULTIPLE SCLEROSIS
     Route: 048
     Dates: end: 20141224
  2. AUBAGIO [Suspect]
     Active Substance: TERIFLUNOMIDE
     Indication: MULTIPLE SCLEROSIS
     Route: 048
     Dates: start: 20141003

REACTIONS (16)
  - Feeling cold [Unknown]
  - Pyrexia [Unknown]
  - Sleep disorder [Unknown]
  - Back pain [Unknown]
  - Nausea [Unknown]
  - Hypoaesthesia [Unknown]
  - Cold sweat [Unknown]
  - Activities of daily living impaired [Unknown]
  - Kidney infection [Recovering/Resolving]
  - Gait disturbance [Unknown]
  - Alopecia [Unknown]
  - Drug dose omission [Unknown]
  - Hypoaesthesia [Unknown]
  - Vomiting [Unknown]
  - Malaise [Unknown]
  - Fatigue [Unknown]

NARRATIVE: CASE EVENT DATE: 2014
